FAERS Safety Report 17839444 (Version 7)
Quarter: 2020Q3

REPORT INFORMATION
  Report Type: Spontaneous
  Country: US (occurrence: US)
  Receive Date: 20200529
  Receipt Date: 20200930
  Transmission Date: 20201103
  Serious: No
  Sender: FDA-Public Use
  Company Number: US-GLAXOSMITHKLINE-US2020089523

PATIENT
  Age: 54 Year
  Sex: Female

DRUGS (4)
  1. LAMICTAL [Suspect]
     Active Substance: LAMOTRIGINE
     Indication: BIPOLAR DISORDER
     Dosage: 100 MG, TID
     Route: 065
  2. LAMICTAL [Suspect]
     Active Substance: LAMOTRIGINE
     Dosage: UNK
     Route: 065
  3. LAMICTAL [Suspect]
     Active Substance: LAMOTRIGINE
     Indication: DEPRESSION
     Dosage: 300 MG, 1D
     Route: 048
     Dates: start: 2000
  4. LAMOTRIGINE. [Suspect]
     Active Substance: LAMOTRIGINE
     Indication: BIPOLAR DISORDER
     Dosage: UNK
     Route: 065
     Dates: start: 1999

REACTIONS (8)
  - Erythema [Unknown]
  - Dry throat [Unknown]
  - Drug ineffective [Unknown]
  - Product complaint [Unknown]
  - Pruritus [Unknown]
  - Adverse drug reaction [Unknown]
  - Rash [Unknown]
  - Cough [Unknown]

NARRATIVE: CASE EVENT DATE: 2020
